FAERS Safety Report 5644519-4 (Version None)
Quarter: 2008Q1

REPORT INFORMATION
  Report Type: 
  Country: None (occurrence: None)
  Receive Date: 20080229
  Receipt Date: 20070209
  Transmission Date: 20080703
  Serious: No
  Sender: FDA-Public Use
  Company Number: A0639028A

PATIENT
  Age: 36 Year
  Sex: Male

DRUGS (1)
  1. VALTREX [Suspect]
     Indication: HERPES ZOSTER
     Dosage: 500MG PER DAY
     Route: 048
     Dates: start: 20061101

REACTIONS (3)
  - DRUG INEFFECTIVE [None]
  - GROIN PAIN [None]
  - RASH [None]
